FAERS Safety Report 7358467-5 (Version None)
Quarter: 2011Q1

REPORT INFORMATION
  Report Type: 
  Country: None (occurrence: None)
  Receive Date: 20110314
  Receipt Date: 20110314
  Transmission Date: 20110831
  Serious: No
  Sender: FDA-Public Use
  Company Number: None

PATIENT
  Age: 58 Year
  Sex: Female
  Weight: 85 kg

DRUGS (1)
  1. TYGACIL [Suspect]
     Indication: CELLULITIS
     Dosage: 100MG Q24H IV
     Route: 042
     Dates: start: 20110307, end: 20110310

REACTIONS (2)
  - ABDOMINAL PAIN [None]
  - NAUSEA [None]
